FAERS Safety Report 16290373 (Version 1)
Quarter: 2019Q2

REPORT INFORMATION
  Report Type: Spontaneous
  Country: FR (occurrence: FR)
  Receive Date: 20190509
  Receipt Date: 20190509
  Transmission Date: 20190711
  Serious: Yes (Other)
  Sender: FDA-Public Use
  Company Number: FR-009507513-1905FRA001861

PATIENT
  Age: 70 Year
  Sex: Female
  Weight: 80 kg

DRUGS (7)
  1. LINEZOLID. [Suspect]
     Active Substance: LINEZOLID
     Indication: HYPERTHERMIA
     Dosage: 2 TABLET, QD
     Route: 041
     Dates: start: 20180514, end: 20180517
  2. GRANOCYTE [Suspect]
     Active Substance: LENOGRASTIM
     Indication: NEUTROPENIA
     Dosage: 1 DOSAGE FORM, QD
     Route: 041
     Dates: start: 20180514, end: 20180516
  3. LEVOTHYROX [Concomitant]
     Active Substance: LEVOTHYROXINE
  4. PRIMPERAN [Suspect]
     Active Substance: METOCLOPRAMIDE HYDROCHLORIDE
     Indication: NAUSEA
     Dosage: 2 MILLILITER, QD
     Route: 041
     Dates: start: 20180505, end: 20180515
  5. NOXAFIL [Suspect]
     Active Substance: POSACONAZOLE
     Indication: PROPHYLAXIS
     Dosage: 3 TABLETS, QD
     Route: 048
     Dates: start: 20180502, end: 20180520
  6. ULTRAPROCT [CLEMIZOLE\DIBUCAINE\FLUOCORTOLONE CAPROATE\FLUOCORTOLONE PIVALATE] [Suspect]
     Active Substance: CLEMIZOLE\DIBUCAINE\FLUOCORTOLONE CAPROATE\FLUOCORTOLONE PIVALATE
     Indication: PRODUCT USED FOR UNKNOWN INDICATION
     Dosage: 3 DOSAGE FORM, QD
     Route: 003
     Dates: start: 20180508, end: 20180518
  7. PIPERACILLIN AND TAZOBACTAM [Concomitant]
     Active Substance: PIPERACILLIN SODIUM\TAZOBACTAM SODIUM

REACTIONS (1)
  - Neutrophilic dermatosis [Recovered/Resolved]

NARRATIVE: CASE EVENT DATE: 20180515
